FAERS Safety Report 25994708 (Version 1)
Quarter: 2025Q4

REPORT INFORMATION
  Report Type: Spontaneous
  Country: IR (occurrence: IR)
  Receive Date: 20251104
  Receipt Date: 20251104
  Transmission Date: 20260119
  Serious: Yes (Hospitalization)
  Sender: STRIDES
  Company Number: None

PATIENT
  Age: 45 Year
  Sex: Female

DRUGS (4)
  1. PREDNISOLONE [Suspect]
     Active Substance: PREDNISOLONE
     Indication: Granulomatosis with polyangiitis
     Dosage: UNK
     Route: 048
  2. PREDNISOLONE [Suspect]
     Active Substance: PREDNISOLONE
     Indication: Vasculitis
  3. AMLODIPINE\VALSARTAN [Concomitant]
     Active Substance: AMLODIPINE\VALSARTAN
     Indication: Hypertension
     Dosage: UNK
     Route: 065
  4. FUROSEMIDE [Concomitant]
     Active Substance: FUROSEMIDE
     Indication: Hypertension
     Dosage: UNK
     Route: 065

REACTIONS (12)
  - Generalised tonic-clonic seizure [Recovering/Resolving]
  - Diastolic dysfunction [Recovering/Resolving]
  - Mitral valve incompetence [Recovered/Resolved]
  - Tricuspid valve incompetence [Recovered/Resolved]
  - Pulmonary valve incompetence [Recovered/Resolved]
  - Pulmonary arterial hypertension [Recovering/Resolving]
  - Pleural effusion [Recovering/Resolving]
  - Pulmonary cavitation [Recovering/Resolving]
  - Myocardiac abscess [Recovered/Resolved]
  - Pulmonary tuberculosis [Recovering/Resolving]
  - Cardiac tuberculosis [Recovered/Resolved]
  - Off label use [Unknown]
